FAERS Safety Report 6256480-2 (Version None)
Quarter: 2009Q2

REPORT INFORMATION
  Report Type: 
  Country: None (occurrence: None)
  Receive Date: 20090630
  Receipt Date: 20090630
  Transmission Date: 20091009
  Serious: Yes (Other)
  Sender: FDA-Public Use
  Company Number: None

PATIENT
  Age: 63 Year
  Sex: Female
  Weight: 42.6381 kg

DRUGS (2)
  1. ACTONEL [Suspect]
     Indication: OSTEOPENIA
     Dosage: 35MG ONCE A WEEK BUCCAL
     Route: 002
     Dates: start: 20060418, end: 20081231
  2. FOSAMAX [Suspect]
     Indication: OSTEOPENIA
     Dosage: 70MG ONCE A WEEK BUCCAL
     Route: 002
     Dates: start: 20090104, end: 20090620

REACTIONS (7)
  - ARTHRALGIA [None]
  - HYPOPHAGIA [None]
  - JAW DISORDER [None]
  - JOINT CREPITATION [None]
  - MASTICATION DISORDER [None]
  - PAIN IN JAW [None]
  - WEIGHT DECREASED [None]
